FAERS Safety Report 4365027-7 (Version None)
Quarter: 2004Q2

REPORT INFORMATION
  Report Type: 
  Country: None (occurrence: None)
  Receive Date: 20040520
  Receipt Date: 20040505
  Transmission Date: 20050107
  Serious: Yes (Other)
  Sender: FDA-Public Use
  Company Number: B0332471A

PATIENT
  Age: 33 Month
  Sex: Female

DRUGS (1)
  1. AMOXIL [Suspect]

REACTIONS (3)
  - ECCHYMOSIS [None]
  - ERYTHEMA MULTIFORME [None]
  - TYPE IV HYPERSENSITIVITY REACTION [None]
